FAERS Safety Report 20460654 (Version 1)
Quarter: 2022Q1

REPORT INFORMATION
  Report Type: Report from Study
  Country: GB (occurrence: GB)
  Receive Date: 20220211
  Receipt Date: 20220211
  Transmission Date: 20220424
  Serious: Yes (Other)
  Sender: FDA-Public Use
  Company Number: GB-TAKEDA-2022TUS008855

PATIENT
  Age: 67 Year
  Sex: Male

DRUGS (1)
  1. VEDOLIZUMAB [Suspect]
     Active Substance: VEDOLIZUMAB
     Indication: Crohn^s disease
     Dosage: 108 MILLIGRAM
     Route: 058

REACTIONS (7)
  - Haematochezia [Unknown]
  - Vision blurred [Unknown]
  - Headache [Unknown]
  - Myalgia [Unknown]
  - Acne [Unknown]
  - Pyrexia [Unknown]
  - Pain in extremity [Unknown]
